FAERS Safety Report 14001209 (Version 3)
Quarter: 2020Q4

REPORT INFORMATION
  Report Type: Spontaneous
  Country: US (occurrence: US)
  Receive Date: 20170922
  Receipt Date: 20201214
  Transmission Date: 20210113
  Serious: Yes (Death, Hospitalization)
  Sender: FDA-Public Use
  Company Number: US-JNJFOC-20170800226

PATIENT
  Age: 65 Year
  Sex: Male

DRUGS (3)
  1. XARELTO [Suspect]
     Active Substance: RIVAROXABAN
     Indication: ATRIAL FIBRILLATION
  2. XARELTO [Suspect]
     Active Substance: RIVAROXABAN
     Indication: CEREBROVASCULAR ACCIDENT PROPHYLAXIS
     Dosage: 15MG AND 20 MG
     Route: 048
     Dates: start: 20141114, end: 20150824
  3. XARELTO [Suspect]
     Active Substance: RIVAROXABAN
     Indication: THROMBOSIS

REACTIONS (2)
  - Gastrointestinal haemorrhage [Recovered/Resolved]
  - Coagulopathy [Recovering/Resolving]

NARRATIVE: CASE EVENT DATE: 20150824
